FAERS Safety Report 23500597 (Version 1)
Quarter: 2024Q1

REPORT INFORMATION
  Report Type: Spontaneous
  Country: US (occurrence: US)
  Receive Date: 20240208
  Receipt Date: 20240208
  Transmission Date: 20240410
  Serious: Yes (Hospitalization)
  Sender: FDA-Public Use
  Company Number: US-RADIUS HEALTH, INC.-2020US002815

PATIENT
  Age: 61 Year
  Sex: Female

DRUGS (2)
  1. TYMLOS [Suspect]
     Active Substance: ABALOPARATIDE
     Indication: Osteoporosis
     Dosage: 80MCG, QD
     Route: 058
     Dates: start: 201807, end: 20190531
  2. TYMLOS [Suspect]
     Active Substance: ABALOPARATIDE
     Dosage: 80MCG, QD
     Route: 058
     Dates: start: 20200709

REACTIONS (2)
  - Localised infection [Recovered/Resolved]
  - Skin abrasion [Recovered/Resolved]

NARRATIVE: CASE EVENT DATE: 20190531
